FAERS Safety Report 23785315 (Version 2)
Quarter: 2024Q3

REPORT INFORMATION
  Report Type: Spontaneous
  Country: GB (occurrence: GB)
  Receive Date: 20240425
  Receipt Date: 20240708
  Transmission Date: 20241017
  Serious: No
  Sender: MYLAN
  Company Number: GB-MYLANLABS-2024M1036189

PATIENT

DRUGS (1)
  1. EPIPEN [Suspect]
     Active Substance: EPINEPHRINE
     Indication: Product used for unknown indication
     Dosage: UNK
     Route: 065

REACTIONS (2)
  - Product leakage [None]
  - Product quality issue [None]
